FAERS Safety Report 5625181-3 (Version None)
Quarter: 2008Q1

REPORT INFORMATION
  Report Type: 
  Country: None (occurrence: None)
  Receive Date: 20080211
  Receipt Date: 20080205
  Transmission Date: 20080703
  Serious: Yes (Death)
  Sender: FDA-Public Use
  Company Number: S08-USA-00438-01

PATIENT

DRUGS (2)
  1. CELEXA [Suspect]
     Dates: start: 20000101
  2. ULTRAM [Suspect]
     Dates: start: 20000101

REACTIONS (1)
  - DRUG TOXICITY [None]
